FAERS Safety Report 8442801-9 (Version None)
Quarter: 2012Q2

REPORT INFORMATION
  Report Type: 
  Country: None (occurrence: None)
  Receive Date: 20120615
  Receipt Date: 20120607
  Transmission Date: 20120825
  Serious: Yes (Death, Other)
  Sender: FDA-Public Use
  Company Number: JP-CELGENEUS-163-50794-12011898

PATIENT
  Age: 66 Year
  Sex: Male

DRUGS (7)
  1. ITRACONAZOLE [Concomitant]
     Route: 065
  2. COTRIM [Concomitant]
     Route: 065
  3. SINGULAIR [Concomitant]
     Route: 065
  4. VIDAZA [Suspect]
     Dosage: 75 MILLIGRAM/SQ. METER
     Route: 041
     Dates: start: 20111201, end: 20111207
  5. JANUVIA [Concomitant]
     Route: 065
  6. NESINA [Concomitant]
     Route: 065
  7. PREDNISOLONE [Concomitant]
     Route: 065

REACTIONS (2)
  - SEPSIS [None]
  - BLOOD BICARBONATE INCREASED [None]
